FAERS Safety Report 4493131-1 (Version None)
Quarter: 2004Q4

REPORT INFORMATION
  Report Type: 
  Country: None (occurrence: None)
  Receive Date: 20041104
  Receipt Date: 20041027
  Transmission Date: 20050328
  Serious: Yes (Hospitalization)
  Sender: FDA-Public Use
  Company Number: GB-BRISTOL-MYERS SQUIBB COMPANY-12746814

PATIENT
  Age: 70 Year
  Sex: Male

DRUGS (13)
  1. WARFARIN SODIUM [Suspect]
     Dates: start: 19980101
  2. ACETYLSALICYLIC ACID [Suspect]
     Indication: MYOCARDIAL INFARCTION
     Route: 048
     Dates: start: 19970101, end: 20040901
  3. DICLOFENAC [Suspect]
     Indication: RHEUMATOID ARTHRITIS
     Route: 048
     Dates: start: 19900101, end: 20040901
  4. FERROUS SULFATE TAB [Concomitant]
     Route: 048
  5. FOLIC ACID [Concomitant]
     Route: 048
  6. ATORVASTATIN CALCIUM [Concomitant]
     Dosage: NOCTE
     Route: 048
  7. RAMIPRIL [Concomitant]
     Route: 048
  8. FOSAMAX [Concomitant]
     Route: 048
  9. CALCICHEW D3 [Concomitant]
     Route: 048
  10. TRAMADOL HCL [Concomitant]
     Route: 048
  11. METHOTREXATE [Concomitant]
     Route: 048
  12. PANTOPRAZOLE [Concomitant]
     Route: 048
  13. PREDNISOLONE [Concomitant]
     Route: 048
     Dates: start: 19950101

REACTIONS (3)
  - BLOOD CREATINE INCREASED [None]
  - GASTRIC ULCER [None]
  - HAEMATEMESIS [None]
